FAERS Safety Report 6425015-3 (Version None)
Quarter: 2009Q4

REPORT INFORMATION
  Report Type: 
  Country: None (occurrence: None)
  Receive Date: 20091103
  Receipt Date: 20091030
  Transmission Date: 20100525
  Serious: Yes (Life-Threatening, Hospitalization)
  Sender: FDA-Public Use
  Company Number: GXKR2009DE11905

PATIENT
  Age: 37 Year
  Sex: Female
  Weight: 100 kg

DRUGS (4)
  1. LISINOPRIL [Suspect]
     Indication: SUICIDE ATTEMPT
     Dosage: 40 DOSAGE FORMS
     Route: 048
     Dates: start: 20090923, end: 20090923
  2. MOLSIDOMINE (NGX) [Suspect]
     Indication: SUICIDE ATTEMPT
     Dosage: 320 MG, ONCE/SINGLE
     Route: 048
     Dates: start: 20090923, end: 20090923
  3. NITRENDIPINE (NGX) [Suspect]
     Indication: SUICIDE ATTEMPT
     Dosage: 800 MG, ONCE/SINGLE
     Route: 048
     Dates: start: 20090923, end: 20090923
  4. METHYLDOPA [Suspect]
     Indication: SUICIDE ATTEMPT
     Dosage: 1000 MG, ONCE/SINGLE
     Route: 048
     Dates: start: 20090923, end: 20090923

REACTIONS (2)
  - CARDIOGENIC SHOCK [None]
  - CHOLECYSTITIS [None]
